FAERS Safety Report 24858928 (Version 1)
Quarter: 2025Q1

REPORT INFORMATION
  Report Type: Report from Study
  Country: EG (occurrence: EG)
  Receive Date: 20250118
  Receipt Date: 20250118
  Transmission Date: 20250408
  Serious: Yes (Disabling)
  Sender: NOVARTIS
  Company Number: EG-002147023-NVSC2025EG007858

PATIENT
  Sex: Female
  Weight: 60 kg

DRUGS (2)
  1. MAYZENT [Suspect]
     Active Substance: SIPONIMOD
     Indication: Multiple sclerosis
     Dosage: 2 MG, QD (STARTED 3 MONTHS AGO)
     Route: 048
  2. ESCITALOPRAM OXALATE [Suspect]
     Active Substance: ESCITALOPRAM OXALATE
     Indication: Sedation
     Dosage: 20 MG, QD (STARTED 3 YEARS AGO)
     Route: 048

REACTIONS (3)
  - Myalgia [Not Recovered/Not Resolved]
  - Acne [Not Recovered/Not Resolved]
  - Menstruation irregular [Not Recovered/Not Resolved]
